FAERS Safety Report 10031372 (Version 1)
Quarter: 2014Q1

REPORT INFORMATION
  Report Type: Spontaneous
  Country: US (occurrence: None)
  Receive Date: 20140306
  Receipt Date: 20140306
  Transmission Date: 20141002
  Serious: Yes (Other)
  Sender: FDA-Public Use
  Company Number: 163-21880-12100122

PATIENT
  Age: 42 Year
  Sex: Male
  Weight: 88.45 kg

DRUGS (7)
  1. REVLIMID (LENALIDOMIDE) (25 MILLIGRAM, CAPSULES) [Suspect]
     Indication: PLASMA CELL MYELOMA
     Dosage: 25 MG, 21 IN 21 D, PO
     Route: 048
     Dates: start: 200902
  2. ASA (ACETYLSALICYCLIC ACID) [Concomitant]
  3. ADVIL (IBUPROFEN) [Concomitant]
  4. DEXAMETHASONE (DEXAMETHASONE) [Concomitant]
  5. PREVACID (LANSOPRAZOLE) [Concomitant]
  6. K-DUR (POTASSIUM CHLORIDE) [Concomitant]
  7. PRILOSEC (OMEPRAZOLE) [Concomitant]

REACTIONS (4)
  - Diverticular perforation [None]
  - Leukopenia [None]
  - Gastroenteritis viral [None]
  - Vomiting [None]
